FAERS Safety Report 8457894-2 (Version None)
Quarter: 2012Q2

REPORT INFORMATION
  Report Type: 
  Country: None (occurrence: None)
  Receive Date: 20120618
  Receipt Date: 20120618
  Transmission Date: 20120825
  Serious: Yes (Other)
  Sender: FDA-Public Use
  Company Number: None

PATIENT
  Sex: Female

DRUGS (1)
  1. PREDNISOLONE ACETATE [Suspect]
     Indication: CATARACT OPERATION
     Dosage: 1 DROP 3 TIMES A DAY INTRAOCULAR
     Route: 031

REACTIONS (5)
  - AGEUSIA [None]
  - SOMNOLENCE [None]
  - ILL-DEFINED DISORDER [None]
  - DEPRESSION [None]
  - DECREASED APPETITE [None]
